FAERS Safety Report 5388652-3 (Version None)
Quarter: 2007Q3

REPORT INFORMATION
  Report Type: 
  Country: None (occurrence: None)
  Receive Date: 20070716
  Receipt Date: 20070706
  Transmission Date: 20080115
  Serious: Yes (Other)
  Sender: FDA-Public Use
  Company Number: US-BOEHRINGER INGELHEIM PHARMACEUTICALS, INC.-2007-DE-04016GD

PATIENT
  Age: 59 Year
  Sex: Male

DRUGS (7)
  1. TELMISARTAN [Suspect]
     Indication: HYPERTENSION
  2. TELMISARTAN [Suspect]
     Indication: PROTEINURIA
  3. BEVACIZUMAB [Suspect]
     Indication: METASTATIC RENAL CELL CARCINOMA
     Dosage: 10 MG/KG OVER 1.5 H
     Route: 042
  4. HYDROCHLOROTHIAZIDE [Concomitant]
  5. GLIMEPIRIDE [Concomitant]
  6. INTERFERON ALFA-2B [Concomitant]
     Indication: METASTATIC RENAL CELL CARCINOMA
     Route: 058
  7. AMLODIPINE [Concomitant]

REACTIONS (1)
  - PROTEINURIA [None]
